FAERS Safety Report 16861050 (Version 1)
Quarter: 2019Q3

REPORT INFORMATION
  Report Type: Spontaneous
  Country: CA (occurrence: CA)
  Receive Date: 20190927
  Receipt Date: 20190927
  Transmission Date: 20191005
  Serious: Yes (Other)
  Sender: FDA-Public Use
  Company Number: CA-TEVA-2019-CA-1113094

PATIENT
  Sex: Female

DRUGS (10)
  1. QUETIAPINE. [Suspect]
     Active Substance: QUETIAPINE
     Indication: PRODUCT USED FOR UNKNOWN INDICATION
     Route: 065
  2. VENLAFAXINE HYDROCHLORIDE. [Suspect]
     Active Substance: VENLAFAXINE HYDROCHLORIDE
     Route: 065
  3. VENLAFAXINE HYDROCHLORIDE. [Suspect]
     Active Substance: VENLAFAXINE HYDROCHLORIDE
     Route: 048
  4. PREMARIN [Concomitant]
     Active Substance: ESTROGENS, CONJUGATED
  5. CLONAZEPAM. [Concomitant]
     Active Substance: CLONAZEPAM
  6. MACRODANTIN [Concomitant]
     Active Substance: NITROFURANTOIN
  7. VENLAFAXINE HYDROCHLORIDE. [Suspect]
     Active Substance: VENLAFAXINE HYDROCHLORIDE
     Indication: PRODUCT USED FOR UNKNOWN INDICATION
     Route: 065
  8. VENLAFAXINE HYDROCHLORIDE. [Suspect]
     Active Substance: VENLAFAXINE HYDROCHLORIDE
     Route: 065
  9. VENLAFAXINE HYDROCHLORIDE. [Suspect]
     Active Substance: VENLAFAXINE HYDROCHLORIDE
     Route: 065
  10. PROVERA [Concomitant]
     Active Substance: MEDROXYPROGESTERONE ACETATE

REACTIONS (19)
  - Amnesia [Unknown]
  - Drug ineffective [Unknown]
  - Initial insomnia [Unknown]
  - Mood altered [Unknown]
  - Anger [Unknown]
  - Decreased appetite [Unknown]
  - Tremor [Unknown]
  - Anhedonia [Unknown]
  - Hypoaesthesia [Unknown]
  - Sleep disorder [Unknown]
  - Condition aggravated [Unknown]
  - Anxiety [Unknown]
  - Asthenia [Unknown]
  - Disturbance in attention [Unknown]
  - Intentional self-injury [Unknown]
  - Feelings of worthlessness [Unknown]
  - Decreased interest [Unknown]
  - Nightmare [Unknown]
  - Weight increased [Unknown]
